FAERS Safety Report 5149760-5 (Version None)
Quarter: 2006Q4

REPORT INFORMATION
  Report Type: 
  Country: None (occurrence: None)
  Receive Date: 20061113
  Receipt Date: 20061106
  Transmission Date: 20070319
  Serious: Yes (Other)
  Sender: FDA-Public Use
  Company Number: US-BRISTOL-MYERS SQUIBB COMPANY-13567862

PATIENT
  Age: 36 Year
  Sex: Male
  Weight: 94 kg

DRUGS (5)
  1. ABILIFY [Suspect]
     Indication: OBSESSIVE-COMPULSIVE DISORDER
  2. TRILEPTAL [Concomitant]
  3. CLORIMIPRAMINE [Concomitant]
  4. MIRALAX [Concomitant]
  5. LORAZEPAM [Concomitant]

REACTIONS (5)
  - ABDOMINAL PAIN UPPER [None]
  - DIZZINESS [None]
  - HEADACHE [None]
  - HEPATITIS [None]
  - RETCHING [None]
